FAERS Safety Report 21047845 (Version 1)
Quarter: 2022Q3

REPORT INFORMATION
  Report Type: Report from Study
  Country: NL (occurrence: NL)
  Receive Date: 20220706
  Receipt Date: 20220706
  Transmission Date: 20221027
  Serious: Yes (Death, Hospitalization)
  Sender: FDA-Public Use
  Company Number: NL-MYLANLABS-2022M1050521

PATIENT
  Age: 71 Year
  Sex: Male

DRUGS (6)
  1. TICAGRELOR [Suspect]
     Active Substance: TICAGRELOR
     Indication: Antiplatelet therapy
     Dosage: 180 MILLIGRAM
     Route: 065
  2. TICAGRELOR [Suspect]
     Active Substance: TICAGRELOR
     Indication: Thrombosis prophylaxis
  3. ASPIRIN [Suspect]
     Active Substance: ASPIRIN
     Indication: Antiplatelet therapy
     Dosage: UNK
     Route: 065
  4. ASPIRIN [Suspect]
     Active Substance: ASPIRIN
     Indication: Thrombosis prophylaxis
  5. CANGRELOR [Suspect]
     Active Substance: CANGRELOR
     Indication: Antiplatelet therapy
     Dosage: 30 MICROGRAM/KILOGRAM (IV BOLUS 30MICROG/KG FOLLOWED BY AN INFUSION OF 4MICROG/KG/MIN)
     Route: 040
  6. CANGRELOR [Suspect]
     Active Substance: CANGRELOR
     Indication: Thrombosis prophylaxis
     Dosage: 4 MICROGRAM/KILOGRAM, QMINUTE
     Route: 042

REACTIONS (1)
  - Drug ineffective [Fatal]
